FAERS Safety Report 5798356-0 (Version None)
Quarter: 2008Q3

REPORT INFORMATION
  Report Type: 
  Country: None (occurrence: None)
  Receive Date: 20080702
  Receipt Date: 20080626
  Transmission Date: 20090109
  Serious: Yes (Hospitalization, Other)
  Sender: FDA-Public Use
  Company Number: US-JNJFOC-20080600145

PATIENT
  Age: 7 Decade
  Sex: Female

DRUGS (10)
  1. REMICADE [Suspect]
     Indication: CROHN'S DISEASE
     Route: 042
  2. FOLIC ACID [Concomitant]
  3. PENTASA [Concomitant]
  4. VITAMIN B-12 [Concomitant]
     Dosage: 1000 MCG
     Route: 058
  5. MERCAPTOPURINE [Concomitant]
  6. MERCAPTOPURINE [Concomitant]
  7. EVISTA [Concomitant]
  8. IRON [Concomitant]
  9. ASCORBIC ACID [Concomitant]
  10. MULTI-VITAMIN [Concomitant]

REACTIONS (4)
  - CARDIAC FAILURE CONGESTIVE [None]
  - CARDIOMYOPATHY [None]
  - UPPER RESPIRATORY TRACT INFECTION [None]
  - VIRAL MYOCARDITIS [None]
